FAERS Safety Report 26009610 (Version 1)
Quarter: 2025Q4

REPORT INFORMATION
  Report Type: Other
  Country: EU (occurrence: EU)
  Receive Date: 20251107
  Receipt Date: 20251107
  Transmission Date: 20260118
  Serious: Yes (Other)
  Sender: ANI
  Company Number: EU-ANIPHARMA-031066

PATIENT

DRUGS (3)
  1. PROPRANOLOL [Suspect]
     Active Substance: PROPRANOLOL HYDROCHLORIDE
     Indication: Infantile haemangioma
  2. PREDNISONE [Concomitant]
     Active Substance: PREDNISONE
     Indication: Infantile haemangioma
  3. PREDNISONE [Concomitant]
     Active Substance: PREDNISONE
     Indication: Infantile haemangioma
     Dosage: GRADUAL TAPERING

REACTIONS (1)
  - Hypothyroidism [Recovered/Resolved]
